FAERS Safety Report 8993650 (Version 3)
Quarter: 2013Q4

REPORT INFORMATION
  Report Type: Spontaneous
  Country: US (occurrence: US)
  Receive Date: 20130102
  Receipt Date: 20131218
  Transmission Date: 20140711
  Serious: Yes (Other)
  Sender: FDA-Public Use
  Company Number: US-AMGEN-USASP2012084200

PATIENT
  Age: 62 Year
  Sex: Female

DRUGS (2)
  1. ENBREL [Suspect]
     Indication: RHEUMATOID ARTHRITIS
     Dosage: 50 MG, QWK
     Route: 065
     Dates: start: 20100901
  2. ENBREL [Suspect]
     Indication: OSTEOARTHRITIS
     Dosage: UNK
     Route: 065

REACTIONS (15)
  - Wrist fracture [Recovered/Resolved]
  - Obstruction gastric [Recovered/Resolved]
  - Scar [Recovered/Resolved]
  - Fall [Recovered/Resolved]
  - Tooth loss [Recovered/Resolved]
  - Arthralgia [Not Recovered/Not Resolved]
  - Osteoporosis [Not Recovered/Not Resolved]
  - Gastrooesophageal reflux disease [Not Recovered/Not Resolved]
  - Finger deformity [Not Recovered/Not Resolved]
  - Hand deformity [Not Recovered/Not Resolved]
  - Activities of daily living impaired [Not Recovered/Not Resolved]
  - Muscular weakness [Not Recovered/Not Resolved]
  - Inflammation [Not Recovered/Not Resolved]
  - Pain in extremity [Not Recovered/Not Resolved]
  - Oral herpes [Not Recovered/Not Resolved]
